FAERS Safety Report 6807823-X (Version None)
Quarter: 2010Q2

REPORT INFORMATION
  Report Type: 
  Country: None (occurrence: None)
  Receive Date: 20100629
  Receipt Date: 20090209
  Transmission Date: 20101027
  Serious: No
  Sender: FDA-Public Use
  Company Number: US-PFIZER INC-2009154455

PATIENT
  Sex: Male

DRUGS (2)
  1. TIKOSYN [Suspect]
     Dosage: UNK
  2. DEMAZIN SYRUP [Concomitant]

REACTIONS (3)
  - HEADACHE [None]
  - PAIN [None]
  - SINUSITIS [None]
